FAERS Safety Report 15407530 (Version 1)
Quarter: 2018Q3

REPORT INFORMATION
  Report Type: Spontaneous
  Country: US (occurrence: US)
  Receive Date: 20180920
  Receipt Date: 20180920
  Transmission Date: 20181010
  Serious: No
  Sender: FDA-Public Use
  Company Number: US-AMARIN PHARMA, INC.-2018AMR000090

PATIENT
  Age: 71 Year
  Sex: Female
  Weight: 66.28 kg

DRUGS (2)
  1. VASCEPA [Suspect]
     Active Substance: ICOSAPENT ETHYL
     Route: 048
     Dates: start: 20180416
  2. VASCEPA [Suspect]
     Active Substance: ICOSAPENT ETHYL
     Indication: INFLAMMATION
     Route: 048
     Dates: start: 20180412

REACTIONS (2)
  - Off label use [Not Recovered/Not Resolved]
  - Underdose [Not Recovered/Not Resolved]

NARRATIVE: CASE EVENT DATE: 20180412
